FAERS Safety Report 10553876 (Version 1)
Quarter: 2014Q4

REPORT INFORMATION
  Report Type: Spontaneous
  Country: US (occurrence: None)
  Receive Date: 20141029
  Receipt Date: 20141029
  Transmission Date: 20150529
  Serious: No
  Sender: FDA-Public Use
  Company Number: None

PATIENT
  Sex: Male

DRUGS (1)
  1. KYNAMRO [Suspect]
     Active Substance: MIPOMERSEN SODIUM
     Indication: HYPERCHOLESTEROLAEMIA
     Dosage: 200MG, QW, SQ
     Route: 058
     Dates: start: 20140818, end: 20141027

REACTIONS (1)
  - Myalgia [None]
